FAERS Safety Report 4277445-6 (Version None)
Quarter: 2004Q1

REPORT INFORMATION
  Report Type: 
  Country: None (occurrence: None)
  Receive Date: 20040122
  Receipt Date: 20040116
  Transmission Date: 20041129
  Serious: Yes (Hospitalization)
  Sender: FDA-Public Use
  Company Number: GB-GLAXOSMITHKLINE-B0320061A

PATIENT
  Sex: Male

DRUGS (1)
  1. BECONASE [Suspect]
     Dosage: 4PUFF SINGLE DOSE
     Route: 045
     Dates: start: 20040101, end: 20040101

REACTIONS (4)
  - ANAPHYLACTIC REACTION [None]
  - BLOOD PRESSURE DECREASED [None]
  - LOSS OF CONSCIOUSNESS [None]
  - PARAESTHESIA [None]
